FAERS Safety Report 24553547 (Version 1)
Quarter: 2024Q4

REPORT INFORMATION
  Report Type: Report from Study
  Country: GB (occurrence: GB)
  Receive Date: 20241028
  Receipt Date: 20241028
  Transmission Date: 20250115
  Serious: No
  Sender: ROCHE
  Company Number: GB-IPSEN Group, Research and Development-2023-19939

PATIENT
  Sex: Male

DRUGS (2)
  1. NUTROPIN AQ [Suspect]
     Active Substance: SOMATROPIN
     Indication: Growth hormone deficiency
     Dosage: 10MG/2ML
     Route: 065
     Dates: start: 202306
  2. NUTROPIN AQ [Suspect]
     Active Substance: SOMATROPIN
     Dosage: 0.4MG OR 0.5MG INJECT 0.4 MG DAILY MONDAY TO THURSDAY AND 0.5MG DAILY FRIDAY, 10MG/2ML
     Route: 065
     Dates: start: 202306

REACTIONS (4)
  - Product dose omission issue [Unknown]
  - Product prescribing issue [Unknown]
  - Product supply issue [Unknown]
  - No adverse event [Unknown]
